FAERS Safety Report 8303175-7 (Version None)
Quarter: 2012Q2

REPORT INFORMATION
  Report Type: 
  Country: None (occurrence: None)
  Receive Date: 20120423
  Receipt Date: 20120418
  Transmission Date: 20120825
  Serious: No
  Sender: FDA-Public Use
  Company Number: US-BIOGENIDEC-2011BI021318

PATIENT
  Age: 35 Year
  Sex: Female

DRUGS (2)
  1. TYSABRI [Suspect]
     Indication: MULTIPLE SCLEROSIS
     Route: 042
     Dates: start: 20070807, end: 20101230
  2. TYSABRI [Suspect]
     Route: 042
     Dates: start: 20110610

REACTIONS (5)
  - CONTUSION [None]
  - MUSCLE SPASTICITY [None]
  - STRESS [None]
  - FALL [None]
  - ASTHENIA [None]
